FAERS Safety Report 14676594 (Version 1)
Quarter: 2018Q1

REPORT INFORMATION
  Report Type: Spontaneous
  Country: US (occurrence: US)
  Receive Date: 20180324
  Receipt Date: 20180324
  Transmission Date: 20180509
  Serious: No
  Sender: FDA-Public Use
  Company Number: US-JNJFOC-20180315368

PATIENT
  Age: 72 Year
  Sex: Female
  Weight: 93.9 kg

DRUGS (1)
  1. INVOKANA [Suspect]
     Active Substance: CANAGLIFLOZIN
     Indication: TYPE 2 DIABETES MELLITUS
     Route: 048
     Dates: end: 20151012

REACTIONS (1)
  - Genitourinary symptom [Unknown]

NARRATIVE: CASE EVENT DATE: 20151012
